FAERS Safety Report 5782527-3 (Version None)
Quarter: 2008Q2

REPORT INFORMATION
  Report Type: 
  Country: None (occurrence: None)
  Receive Date: 20080623
  Receipt Date: 20080611
  Transmission Date: 20081010
  Serious: Yes (Other)
  Sender: FDA-Public Use
  Company Number: US-PFIZER INC-2008049310

PATIENT
  Age: 30 Year
  Sex: Female

DRUGS (1)
  1. CHANTIX [Suspect]
     Indication: SMOKING CESSATION THERAPY

REACTIONS (9)
  - AGGRESSION [None]
  - ANGER [None]
  - ANOREXIA [None]
  - CONSTIPATION [None]
  - DEPRESSION [None]
  - HEART RATE INCREASED [None]
  - MEMORY IMPAIRMENT [None]
  - NAUSEA [None]
  - NIGHT SWEATS [None]
